FAERS Safety Report 8359543-0 (Version None)
Quarter: 2012Q2

REPORT INFORMATION
  Report Type: 
  Country: None (occurrence: None)
  Receive Date: 20120515
  Receipt Date: 20120503
  Transmission Date: 20120825
  Serious: Yes (Other)
  Sender: FDA-Public Use
  Company Number: US-PFIZER INC-2012113231

PATIENT
  Age: 67 Year
  Sex: Male

DRUGS (3)
  1. MORPHINE SULFATE [Suspect]
     Dosage: UNK
     Route: 042
     Dates: end: 20120426
  2. OXYCONTIN [Suspect]
     Indication: PAIN
     Dosage: UNK
     Dates: end: 20120426
  3. MORPHINE SULFATE [Suspect]
     Indication: PAIN
     Dosage: 30 MG,
     Route: 048

REACTIONS (5)
  - HALLUCINATION [None]
  - DRUG WITHDRAWAL SYNDROME [None]
  - PALPITATIONS [None]
  - AGITATION [None]
  - FEELING JITTERY [None]
